FAERS Safety Report 8002760-X (Version None)
Quarter: 2011Q4

REPORT INFORMATION
  Report Type: 
  Country: None (occurrence: None)
  Receive Date: 20111222
  Receipt Date: 20111212
  Transmission Date: 20120403
  Serious: Yes (Hospitalization)
  Sender: FDA-Public Use
  Company Number: TW-MYLANLABS-2011S1025870

PATIENT
  Age: 39 Year
  Sex: Male

DRUGS (3)
  1. QUETIAPINE [Interacting]
     Indication: DEPRESSION
     Dosage: 100MG DAILY
     Route: 065
  2. VALPROIC ACID [Interacting]
     Indication: DEPRESSION
     Dosage: 1000MG DAILY
     Route: 065
  3. SULPIRIDE [Suspect]
     Indication: DEPRESSION
     Dosage: 200MG DAILY
     Route: 065

REACTIONS (9)
  - HYPERGLYCAEMIA [None]
  - HYPEROSMOLAR STATE [None]
  - WHITE BLOOD CELL COUNT INCREASED [None]
  - DRUG INTERACTION [None]
  - DEPRESSED MOOD [None]
  - BLOOD SODIUM DECREASED [None]
  - BLOOD UREA INCREASED [None]
  - METABOLIC ACIDOSIS [None]
  - BLOOD POTASSIUM INCREASED [None]
